FAERS Safety Report 15006529 (Version 1)
Quarter: 2018Q2

REPORT INFORMATION
  Report Type: Report from Study
  Country: US (occurrence: US)
  Receive Date: 20180613
  Receipt Date: 20180613
  Transmission Date: 20180711
  Serious: No
  Sender: FDA-Public Use
  Company Number: US-US WORLDMEDS, LLC-USW201708-001186

PATIENT
  Age: 83 Year
  Sex: Male
  Weight: 77.11 kg

DRUGS (15)
  1. APOKYN [Suspect]
     Active Substance: APOMORPHINE HYDROCHLORIDE
     Route: 058
     Dates: start: 20170808
  2. ARICEPT [Concomitant]
     Active Substance: DONEPEZIL HYDROCHLORIDE
  3. CARB/LEVO ER [Concomitant]
  4. ENTACAPONE. [Concomitant]
     Active Substance: ENTACAPONE
  5. MIRALAX [Concomitant]
     Active Substance: POLYETHYLENE GLYCOL 3350
  6. ROPINOROLE [Concomitant]
     Active Substance: ROPINIROLE
  7. METFORMIN [Concomitant]
     Active Substance: METFORMIN HYDROCHLORIDE
  8. CLOPIDOGREL [Concomitant]
     Active Substance: CLOPIDOGREL BISULFATE
  9. AMIODARONE [Concomitant]
     Active Substance: AMIODARONE
  10. PRIMIDONE. [Concomitant]
     Active Substance: PRIMIDONE
  11. APOKYN [Suspect]
     Active Substance: APOMORPHINE HYDROCHLORIDE
     Indication: PARKINSON^S DISEASE
     Route: 058
     Dates: start: 20151217
  12. NAMENDA XR [Concomitant]
     Active Substance: MEMANTINE HYDROCHLORIDE
  13. ISOSORBIDE. [Concomitant]
     Active Substance: ISOSORBIDE
  14. LACTULOSE. [Concomitant]
     Active Substance: LACTULOSE
  15. ASA [Concomitant]
     Active Substance: ASPIRIN

REACTIONS (3)
  - Hallucination [Recovered/Resolved]
  - Drug effect incomplete [Unknown]
  - Abnormal behaviour [Recovered/Resolved]

NARRATIVE: CASE EVENT DATE: 201708
